FAERS Safety Report 7242068-3 (Version None)
Quarter: 2011Q1

REPORT INFORMATION
  Report Type: 
  Country: None (occurrence: None)
  Receive Date: 20110124
  Receipt Date: 20110113
  Transmission Date: 20110831
  Serious: Yes (Hospitalization, Other)
  Sender: FDA-Public Use
  Company Number: PHEH2007US12717

PATIENT
  Sex: Male

DRUGS (22)
  1. K-DUR [Concomitant]
  2. LOMOTIL [Concomitant]
  3. OXYCONTIN [Concomitant]
  4. ARTHROTEC [Concomitant]
  5. FLOMAX [Concomitant]
     Dosage: UNK
  6. ZOMETA [Suspect]
     Indication: MULTIPLE MYELOMA
  7. RADIATION TREATMENT [Concomitant]
  8. REVLIMID [Concomitant]
  9. ATIVAN [Concomitant]
  10. MAXZIDE [Concomitant]
  11. COUMADIN [Concomitant]
  12. VORICONAZOLE [Concomitant]
  13. CARAFATE [Concomitant]
  14. KLONOPIN [Concomitant]
  15. DIPHENOXYLATE HCL AND ATROPINE SULFATE [Concomitant]
  16. THALIDOMIDE [Concomitant]
  17. DECADRON [Concomitant]
  18. KLOR-CON [Concomitant]
  19. CHOLESTYRAMINE RESIN [Concomitant]
  20. AREDIA [Suspect]
     Indication: MULTIPLE MYELOMA
  21. PHOS-NAK [Concomitant]
  22. GABAPENTIN [Concomitant]

REACTIONS (83)
  - OSTEONECROSIS OF JAW [None]
  - HYPOPHAGIA [None]
  - CELLULITIS [None]
  - COMPRESSION FRACTURE [None]
  - PYREXIA [None]
  - SKIN LESION [None]
  - SEPSIS [None]
  - TACHYCARDIA [None]
  - BLOOD PRESSURE INCREASED [None]
  - JOINT DISLOCATION [None]
  - DISCOMFORT [None]
  - RENAL FAILURE [None]
  - HYPOPHOSPHATAEMIA [None]
  - BACK PAIN [None]
  - HYPOTENSION [None]
  - SPINAL FRACTURE [None]
  - FATIGUE [None]
  - DYSSTASIA [None]
  - GAIT DISTURBANCE [None]
  - ARTHRALGIA [None]
  - STREPTOCOCCAL BACTERAEMIA [None]
  - FALL [None]
  - OEDEMA [None]
  - HYPOKALAEMIA [None]
  - ABSCESS [None]
  - OSTEOARTHRITIS [None]
  - OSTEOSCLEROSIS [None]
  - HEPATIC LESION [None]
  - HYPOAESTHESIA [None]
  - PAIN [None]
  - DEFORMITY [None]
  - EMOTIONAL DISTRESS [None]
  - BONE DISORDER [None]
  - SEPTIC SHOCK [None]
  - THROMBOCYTOPENIA [None]
  - ENTEROCOCCAL BACTERAEMIA [None]
  - DEHYDRATION [None]
  - OEDEMA PERIPHERAL [None]
  - HYPOMAGNESAEMIA [None]
  - CONFUSIONAL STATE [None]
  - HAEMATURIA [None]
  - HAEMORRHOIDS [None]
  - PARAESTHESIA [None]
  - NEPHROLITHIASIS [None]
  - DYSKINESIA [None]
  - RADICULITIS LUMBOSACRAL [None]
  - PERONEAL NERVE PALSY [None]
  - SPINAL OSTEOARTHRITIS [None]
  - LUNG NEOPLASM [None]
  - ANHEDONIA [None]
  - PNEUMONIA [None]
  - ANAEMIA [None]
  - LETHARGY [None]
  - ORAL HERPES [None]
  - PAIN IN JAW [None]
  - PAIN IN EXTREMITY [None]
  - MUSCULAR WEAKNESS [None]
  - DIZZINESS [None]
  - POSTOPERATIVE WOUND COMPLICATION [None]
  - LEUKOCYTOSIS [None]
  - BRONCHOPULMONARY ASPERGILLOSIS [None]
  - DIARRHOEA [None]
  - GINGIVAL DISORDER [None]
  - OSTEOMYELITIS [None]
  - RESPIRATORY DISORDER [None]
  - NEURITIS [None]
  - LUNG INFILTRATION [None]
  - BONE LESION [None]
  - DEPRESSION [None]
  - PANCYTOPENIA [None]
  - DIVERTICULUM [None]
  - DECUBITUS ULCER [None]
  - ASTHENIA [None]
  - HEADACHE [None]
  - NASOPHARYNGITIS [None]
  - OSTEOLYSIS [None]
  - LUMBAR SPINAL STENOSIS [None]
  - GROIN PAIN [None]
  - ANXIETY [None]
  - INJURY [None]
  - INTERVERTEBRAL DISC PROTRUSION [None]
  - SPONDYLOLISTHESIS [None]
  - MUSCULOSKELETAL STIFFNESS [None]
